FAERS Safety Report 25320568 (Version 3)
Quarter: 2025Q3

REPORT INFORMATION
  Report Type: Spontaneous
  Country: US (occurrence: US)
  Receive Date: 20250515
  Receipt Date: 20250925
  Transmission Date: 20251021
  Serious: No
  Sender: MILLICENT HOLDINGS
  Company Number: US-Millicent Holdings Ltd.-MILL20250202

PATIENT
  Age: 64 Year
  Sex: Female

DRUGS (3)
  1. INTRAROSA [Suspect]
     Active Substance: PRASTERONE
     Indication: Atrophic vulvovaginitis
     Dosage: 1 DAILY
     Route: 067
     Dates: start: 20250124, end: 20250501
  2. INTRAROSA [Suspect]
     Active Substance: PRASTERONE
     Indication: Genitourinary syndrome of menopause
  3. UNSPECIFIED INGREDIENT [Concomitant]
     Active Substance: UNSPECIFIED INGREDIENT
     Indication: Hypothyroidism
     Route: 065

REACTIONS (16)
  - Dermatitis [Recovered/Resolved]
  - Contusion [Recovered/Resolved]
  - Vulvovaginal inflammation [Recovered/Resolved]
  - Genital contusion [Recovered/Resolved]
  - Vulvovaginal rash [Recovered/Resolved]
  - Skin burning sensation [Recovered/Resolved]
  - Skin discomfort [Recovered/Resolved]
  - Skin fissures [Recovered/Resolved]
  - Anxiety [Recovered/Resolved]
  - Feeling abnormal [Recovered/Resolved]
  - Emotional disorder [Recovered/Resolved]
  - Feeling jittery [Recovered/Resolved]
  - Insomnia [Recovered/Resolved]
  - Pelvic pain [Recovered/Resolved]
  - Thyroid hormones increased [Recovered/Resolved]
  - Off label use [Unknown]

NARRATIVE: CASE EVENT DATE: 20250201
